FAERS Safety Report 21801444 (Version 1)
Quarter: 2022Q4

REPORT INFORMATION
  Report Type: Report from Study
  Country: US (occurrence: US)
  Receive Date: 20221230
  Receipt Date: 20221230
  Transmission Date: 20230112
  Serious: No
  Sender: FDA-Public Use
  Company Number: US-ABBVIE-4218204

PATIENT
  Sex: Female

DRUGS (2)
  1. HUMIRA [Suspect]
     Active Substance: ADALIMUMAB
     Indication: Psoriatic arthropathy
     Route: 058
  2. TRULICITY [Concomitant]
     Active Substance: DULAGLUTIDE
     Indication: Product used for unknown indication

REACTIONS (7)
  - Food aversion [Not Recovered/Not Resolved]
  - Oropharyngeal pain [Recovering/Resolving]
  - Bone pain [Not Recovered/Not Resolved]
  - Fatigue [Unknown]
  - Unevaluable event [Recovering/Resolving]
  - Malaise [Unknown]
  - Vitamin B12 decreased [Unknown]
